FAERS Safety Report 7042932-4 (Version None)
Quarter: 2010Q4

REPORT INFORMATION
  Report Type: 
  Country: None (occurrence: None)
  Receive Date: 20101013
  Receipt Date: 20100208
  Transmission Date: 20110411
  Serious: No
  Sender: FDA-Public Use
  Company Number: US-ASTRAZENECA-2010SE05658

PATIENT
  Age: 73 Year
  Sex: Male
  Weight: 92.5 kg

DRUGS (3)
  1. SYMBICORT [Suspect]
     Indication: PNEUMONIA
     Dosage: 320 MCG TWICE A DAY,TOTAL DAILY DOSAGE 640 MCG .
     Route: 055
     Dates: start: 20100209
  2. LEVAQUIN [Concomitant]
     Indication: PNEUMONIA
  3. PLAVIX [Concomitant]

REACTIONS (4)
  - DRY MOUTH [None]
  - DYSGEUSIA [None]
  - GLOSSODYNIA [None]
  - LIP DRY [None]
